FAERS Safety Report 10933120 (Version 2)
Quarter: 2015Q2

REPORT INFORMATION
  Report Type: Spontaneous
  Country: IE (occurrence: IE)
  Receive Date: 20150320
  Receipt Date: 20150430
  Transmission Date: 20150821
  Serious: Yes (Death)
  Sender: FDA-Public Use
  Company Number: IE-ROCHE-1552385

PATIENT
  Age: 86 Year
  Sex: Female

DRUGS (23)
  1. CEFTRIAXONE. [Concomitant]
     Active Substance: CEFTRIAXONE
     Indication: RESPIRATORY TRACT INFECTION
     Route: 065
     Dates: start: 20150114, end: 20150119
  2. CEFTRIAXONE. [Concomitant]
     Active Substance: CEFTRIAXONE
     Route: 065
     Dates: start: 20150129, end: 20150130
  3. GALFER [Concomitant]
     Active Substance: IRON
     Dosage: 305 MG
     Route: 065
  4. VANCOMYCIN HCL [Suspect]
     Active Substance: VANCOMYCIN HYDROCHLORIDE
     Indication: BACTERIAL INFECTION
     Route: 065
     Dates: start: 20150114, end: 20150116
  5. GENTAMICIN. [Suspect]
     Active Substance: GENTAMICIN
     Route: 042
     Dates: start: 20150213, end: 20150218
  6. ZOPICLONE [Concomitant]
     Active Substance: ZOPICLONE
     Route: 065
  7. ULTIBRO [Concomitant]
     Active Substance: GLYCOPYRRONIUM\INDACATEROL
     Dosage: BREEZHALER
     Route: 065
  8. DIGOXIN. [Concomitant]
     Active Substance: DIGOXIN
     Dosage: 62.5 MCG
     Route: 065
  9. VANCOMYCIN HCL [Suspect]
     Active Substance: VANCOMYCIN HYDROCHLORIDE
     Route: 065
     Dates: start: 20150211, end: 20150215
  10. GENTAMICIN. [Suspect]
     Active Substance: GENTAMICIN
     Indication: PRODUCT USED FOR UNKNOWN INDICATION
     Dosage: 120 MG DAILY
     Route: 042
     Dates: start: 20150203, end: 20150205
  11. MIRTAZAPINE. [Concomitant]
     Active Substance: MIRTAZAPINE
     Dosage: 45 MG
     Route: 065
  12. MEMANTINE [Concomitant]
     Active Substance: MEMANTINE
     Dosage: 10 MG
     Route: 065
  13. MEROPENEM TRIHYDRATE [Suspect]
     Active Substance: MEROPENEM
     Indication: PRODUCT USED FOR UNKNOWN INDICATION
     Route: 042
     Dates: start: 20150130, end: 20150218
  14. CALCICHEW [Concomitant]
     Active Substance: CALCIUM CARBONATE
     Route: 065
  15. FLUTICASONE PROPIONATE. [Concomitant]
     Active Substance: FLUTICASONE PROPIONATE
     Route: 065
  16. WARFARIN [Concomitant]
     Active Substance: WARFARIN
     Dosage: VARYING DOSE
     Route: 065
  17. FUROSEMIDE. [Concomitant]
     Active Substance: FUROSEMIDE
     Dosage: 40 MG
     Route: 065
  18. CLARITHROMYCIN. [Concomitant]
     Active Substance: CLARITHROMYCIN
     Route: 065
     Dates: start: 20150117, end: 20150124
  19. LEVOTHYROXINE [Concomitant]
     Active Substance: LEVOTHYROXINE
     Dosage: 50 MCG
     Route: 065
  20. COMBIVENT [Concomitant]
     Active Substance: ALBUTEROL SULFATE\IPRATROPIUM BROMIDE
     Dosage: 1 NEBULE FOUR TIMES DAILY, COMBIVENT UDVS 500 MMCG/2.5 MG PER 2.5ML NE
     Route: 065
  21. PANTOPRAZOLE [Concomitant]
     Active Substance: PANTOPRAZOLE SODIUM
     Dosage: 40 MG
     Route: 065
  22. TAMIFLU [Suspect]
     Active Substance: OSELTAMIVIR PHOSPHATE
     Indication: INFLUENZA
     Dosage: 3 DOSES GIVEN TOTAL
     Route: 048
     Dates: start: 20150215, end: 20150216
  23. LIDOCAINE HYDROCHLORIDE. [Concomitant]
     Active Substance: LIDOCAINE HYDROCHLORIDE
     Dosage: 12 HOURS ON 12 HOURS OFF
     Route: 065

REACTIONS (14)
  - Toxic epidermal necrolysis [Fatal]
  - Myalgia [Fatal]
  - Rash pruritic [Fatal]
  - Arthralgia [Fatal]
  - Skin erosion [Fatal]
  - Blister [Fatal]
  - Skin exfoliation [Fatal]
  - Rash erythematous [Fatal]
  - Pharyngeal erythema [Fatal]
  - Mouth ulceration [Fatal]
  - Blepharitis [Fatal]
  - Conjunctival hyperaemia [Fatal]
  - Tachypnoea [Fatal]
  - Emotional distress [Fatal]

NARRATIVE: CASE EVENT DATE: 20150215
